FAERS Safety Report 19473370 (Version 2)
Quarter: 2021Q4

REPORT INFORMATION
  Report Type: Spontaneous
  Country: US (occurrence: US)
  Receive Date: 20210629
  Receipt Date: 20211213
  Transmission Date: 20220303
  Serious: Yes (Hospitalization)
  Sender: FDA-Public Use
  Company Number: US-PFIZER INC-2021730417

PATIENT
  Age: 60 Year
  Sex: Female
  Weight: 105.69 kg

DRUGS (1)
  1. LYRICA [Suspect]
     Active Substance: PREGABALIN
     Indication: Diabetic neuropathy
     Dosage: 75 MG, DAILY

REACTIONS (4)
  - Foot fracture [Unknown]
  - Fall [Unknown]
  - Glycosylated haemoglobin abnormal [Unknown]
  - Weight decreased [Unknown]
